FAERS Safety Report 21659368 (Version 1)
Quarter: 2022Q4

REPORT INFORMATION
  Report Type: Spontaneous
  Country: US (occurrence: US)
  Receive Date: 20221129
  Receipt Date: 20221129
  Transmission Date: 20230113
  Serious: Yes (Other)
  Sender: FDA-Public Use
  Company Number: US-MLMSERVICE-20221115-3919806-1

PATIENT
  Age: 67 Year
  Sex: Female

DRUGS (1)
  1. OFLOXACIN [Suspect]
     Active Substance: OFLOXACIN
     Indication: Cataract operation
     Dosage: STARTING 1 DAY PRIOR AND FOR 7 DAYS AFTER SURGERY.
     Route: 047

REACTIONS (1)
  - Tendonitis [Recovered/Resolved]
